FAERS Safety Report 9722582 (Version 4)
Quarter: 2014Q1

REPORT INFORMATION
  Report Type: Spontaneous
  Country: US (occurrence: US)
  Receive Date: 20131202
  Receipt Date: 20140116
  Transmission Date: 20141002
  Serious: Yes (Other)
  Sender: FDA-Public Use
  Company Number: US-PFIZER INC-2013340719

PATIENT
  Sex: Male

DRUGS (4)
  1. MORPHINE SULFATE [Suspect]
     Dosage: UNK
  2. OXYCONTIN [Suspect]
     Dosage: 640 MG, DAILY (8, 80 MG TABLETS)
  3. HYDROMORPHONE HYDROCHLORIDE [Suspect]
     Dosage: UNK
  4. HYDROCODONE [Suspect]
     Dosage: UNK

REACTIONS (1)
  - Drug abuse [Unknown]
